FAERS Safety Report 8374283-X (Version None)
Quarter: 2012Q2

REPORT INFORMATION
  Report Type: 
  Country: None (occurrence: None)
  Receive Date: 20120518
  Receipt Date: 20120518
  Transmission Date: 20120825
  Serious: Yes (Disabling, Other)
  Sender: FDA-Public Use
  Company Number: None

PATIENT
  Sex: Female
  Weight: 72.5755 kg

DRUGS (1)
  1. LAMICTAL [Suspect]
     Indication: BIPOLAR DISORDER

REACTIONS (2)
  - TOOTH LOSS [None]
  - DEVICE FAILURE [None]
